FAERS Safety Report 7601569 (Version 3)
Quarter: 2013Q3

REPORT INFORMATION
  Report Type: Report from Study
  Country: DE (occurrence: DE)
  Receive Date: 20100922
  Receipt Date: 20130723
  Transmission Date: 20140515
  Serious: Yes (Hospitalization)
  Sender: FDA-Public Use
  Company Number: DE-ROCHE-724279

PATIENT
  Age: 47 Year
  Sex: Female
  Weight: 51 kg

DRUGS (6)
  1. TRASTUZUMAB [Suspect]
     Indication: BREAST CANCER
     Dosage: DOSE FORM: VIALS, LAST DOSE PRIOR TO SAE 25 AUGUST 2010, DOSE LEVEL: 6 MG/KG
     Route: 042
  2. TRASTUZUMAB [Suspect]
     Dosage: MATAINANCE DOSE: 312 MG
     Route: 042
  3. BEVACIZUMAB [Suspect]
     Indication: BREAST CANCER
     Dosage: DOSE LEVEL: 15 MG/KG, FORM: VIALS, LAST DOSE PRIOR TO SAE: 25 AUG 2010
     Route: 042
  4. DOCETAXEL [Suspect]
     Indication: BREAST CANCER
     Dosage: FORM: VIALS, DOSE LEVEL: 75 MG/M2, LAST DOSE PRIOR TO SAE 25 AUG 2010,
     Route: 042
  5. CARBOPLATIN [Suspect]
     Indication: BREAST CANCER
     Dosage: FORM: VIALS, DOSE LEVEL: 06 MG/ML/MIN (AUC), LAST DOSE PRIOR TO SAE: 25 AUG 2010
     Route: 042
  6. CITALOPRAM [Concomitant]
     Route: 065
     Dates: start: 2006

REACTIONS (1)
  - Gastritis [Not Recovered/Not Resolved]
